FAERS Safety Report 9605738 (Version 3)
Quarter: 2013Q4

REPORT INFORMATION
  Report Type: Report from Study
  Country: CA (occurrence: CA)
  Receive Date: 20131008
  Receipt Date: 20131022
  Transmission Date: 20140711
  Serious: Yes (Hospitalization)
  Sender: FDA-Public Use
  Company Number: CA-ABBVIE-10P-028-0637303-00

PATIENT
  Age: 44 Year
  Sex: Male
  Weight: 75 kg

DRUGS (10)
  1. HUMIRA [Suspect]
     Indication: CROHN^S DISEASE
     Dosage: ONCE
     Route: 058
     Dates: start: 20091019, end: 20091019
  2. HUMIRA [Suspect]
     Dosage: WEEK 2
     Route: 058
  3. HUMIRA [Suspect]
     Dosage: WEEK 4
     Route: 058
  4. HUMIRA [Suspect]
     Route: 058
     Dates: end: 20100301
  5. PREDNISONE [Concomitant]
     Indication: CROHN^S DISEASE
     Dosage: (40 MG QD HIGHEST MAINTAINED DOSE)
  6. PREDNISONE [Concomitant]
     Dates: start: 20100228, end: 20100301
  7. IBUPROFEN [Concomitant]
     Indication: ANKYLOSING SPONDYLITIS
     Dates: start: 2003
  8. CYANOCOBALAMIN [Concomitant]
     Indication: VITAMIN B COMPLEX DEFICIENCY
     Dates: start: 1997
  9. CALCIUM [Concomitant]
     Indication: OSTEOPOROSIS PROPHYLAXIS
     Dates: start: 20100218
  10. ERGOCALCIFEROL [Concomitant]
     Indication: OSTEOPOROSIS PROPHYLAXIS
     Dates: start: 20100218

REACTIONS (6)
  - Small intestinal obstruction [Recovered/Resolved]
  - Small intestinal obstruction [Recovered/Resolved with Sequelae]
  - Sepsis [Not Recovered/Not Resolved]
  - Jejunostomy [Not Recovered/Not Resolved]
  - Peritonitis [Not Recovered/Not Resolved]
  - Gastrointestinal injury [Not Recovered/Not Resolved]
